FAERS Safety Report 17169530 (Version 2)
Quarter: 2019Q4

REPORT INFORMATION
  Report Type: Report from Study
  Country: JP (occurrence: JP)
  Receive Date: 20191218
  Receipt Date: 20191219
  Transmission Date: 20200122
  Serious: Yes (Other)
  Sender: FDA-Public Use
  Company Number: JP-UCBSA-2019053848

PATIENT

DRUGS (2)
  1. VIMPAT [Suspect]
     Active Substance: LACOSAMIDE
     Indication: PRODUCT USED FOR UNKNOWN INDICATION
     Dosage: UNK
     Route: 048
  2. LEVETIRACETAM. [Suspect]
     Active Substance: LEVETIRACETAM
     Indication: PRODUCT USED FOR UNKNOWN INDICATION
     Dosage: UNK
     Route: 048

REACTIONS (14)
  - Syncope [Unknown]
  - Somnolence [Unknown]
  - Liver function test increased [Unknown]
  - Rhinorrhoea [Unknown]
  - Tremor [Unknown]
  - Asthenia [Unknown]
  - Hypoaesthesia [Unknown]
  - Drug ineffective [Unknown]
  - Mood swings [Unknown]
  - Irritability [Unknown]
  - Drug intolerance [Unknown]
  - Migraine [Unknown]
  - Seizure [Unknown]
  - Depressed mood [Unknown]
